FAERS Safety Report 8171087-8 (Version None)
Quarter: 2012Q1

REPORT INFORMATION
  Report Type: 
  Country: None (occurrence: None)
  Receive Date: 20120228
  Receipt Date: 20120223
  Transmission Date: 20120608
  Serious: Yes (Death)
  Sender: FDA-Public Use
  Company Number: PHEH2012US004590

PATIENT
  Age: 65 Year
  Sex: Male
  Weight: 120.18 kg

DRUGS (1)
  1. GLEEVEC [Suspect]
     Indication: RENAL CANCER
     Dosage: 400 MG, DAILY
     Route: 048
     Dates: start: 20100301

REACTIONS (1)
  - DEATH [None]
